FAERS Safety Report 16550789 (Version 1)
Quarter: 2019Q3

REPORT INFORMATION
  Report Type: Spontaneous
  Country: US (occurrence: US)
  Receive Date: 20190709
  Receipt Date: 20190709
  Transmission Date: 20191004
  Serious: No
  Sender: FDA-Public Use
  Company Number: None

PATIENT
  Age: 73 Year
  Sex: Male
  Weight: .13 kg

DRUGS (3)
  1. EQUATE RESTORE PM NIGHTTIME LUBRICANT EYE [Suspect]
     Active Substance: MINERAL OIL\PETROLATUM
     Indication: DRY EYE
     Dosage: ?          QUANTITY:1 TUBE;?
     Route: 047
     Dates: start: 20160701, end: 20190706
  2. XARELTO [Concomitant]
     Active Substance: RIVAROXABAN
  3. RESTASIS [Concomitant]
     Active Substance: CYCLOSPORINE

REACTIONS (3)
  - Recalled product administered [None]
  - Product packaging quantity issue [None]
  - Eye infection [None]

NARRATIVE: CASE EVENT DATE: 20190619
